FAERS Safety Report 18876196 (Version 1)
Quarter: 2021Q1

REPORT INFORMATION
  Report Type: Spontaneous
  Country: DE (occurrence: DE)
  Receive Date: 20210211
  Receipt Date: 20210211
  Transmission Date: 20210420
  Serious: Yes (Death, Life-Threatening, Other)
  Sender: FDA-Public Use
  Company Number: DE-AMGEN-DEUSP2021019170

PATIENT
  Age: 38 Year
  Sex: Male

DRUGS (5)
  1. CISPLATIN. [Concomitant]
     Active Substance: CISPLATIN
     Indication: MIXED HEPATOCELLULAR CHOLANGIOCARCINOMA
     Dosage: UNK
     Dates: start: 2014
  2. PANITUMUMAB [Suspect]
     Active Substance: PANITUMUMAB
     Indication: MIXED HEPATOCELLULAR CHOLANGIOCARCINOMA
     Dosage: UNK
     Route: 065
     Dates: start: 2014
  3. MITOMYCIN. [Concomitant]
     Active Substance: MITOMYCIN
     Indication: MIXED HEPATOCELLULAR CHOLANGIOCARCINOMA
     Dosage: UNK
     Dates: start: 2014
  4. GEMCITABINE. [Concomitant]
     Active Substance: GEMCITABINE
     Indication: MIXED HEPATOCELLULAR CHOLANGIOCARCINOMA
     Dosage: UNK
     Dates: start: 2014
  5. DOXORUBICIN [Concomitant]
     Active Substance: DOXORUBICIN
     Indication: MIXED HEPATOCELLULAR CHOLANGIOCARCINOMA
     Dosage: UNK
     Dates: start: 2014

REACTIONS (9)
  - Disease progression [Fatal]
  - Metastases to central nervous system [Unknown]
  - Off label use [Unknown]
  - Metastases to lung [Unknown]
  - Metastases to bone [Unknown]
  - Myelosuppression [Recovered/Resolved]
  - Therapy partial responder [Unknown]
  - Gene mutation [Unknown]
  - Rash pustular [Recovered/Resolved]

NARRATIVE: CASE EVENT DATE: 2014
